FAERS Safety Report 8471018-7 (Version None)
Quarter: 2012Q2

REPORT INFORMATION
  Report Type: 
  Country: None (occurrence: None)
  Receive Date: 20120620
  Receipt Date: 20120608
  Transmission Date: 20120825
  Serious: Yes (Disabling)
  Sender: FDA-Public Use
  Company Number: 2012AP001794

PATIENT
  Age: 83 Year
  Sex: Female

DRUGS (3)
  1. SIMVASTATIN [Suspect]
     Dosage: 40 MG;QD; PO
     Route: 048
     Dates: start: 20120504, end: 20120518
  2. CITALOPRAM HYDROBROMIDE [Concomitant]
  3. CLOPIDEGREL [Suspect]
     Dosage: 175 MG;QD; PO
     Route: 048
     Dates: start: 20120504, end: 20120518

REACTIONS (4)
  - CONDITION AGGRAVATED [None]
  - PANIC ATTACK [None]
  - CEREBRAL INFARCTION [None]
  - ANXIETY [None]
